FAERS Safety Report 5706285-3 (Version None)
Quarter: 2008Q2

REPORT INFORMATION
  Report Type: 
  Country: None (occurrence: None)
  Receive Date: 20080328
  Receipt Date: 20070423
  Transmission Date: 20081010
  Serious: Yes (Other)
  Sender: FDA-Public Use
  Company Number: HQWYE862126APR07

PATIENT
  Age: 43 Year
  Sex: Female
  Weight: 61.29 kg

DRUGS (4)
  1. ALAVERT [Suspect]
     Indication: HYPERSENSITIVITY
     Dosage: 1 TABLET, ORAL ; 1 TABLE, 1 TIME, ORAL
     Route: 048
     Dates: start: 20070401, end: 20070401
  2. ALAVERT [Suspect]
     Indication: HYPERSENSITIVITY
     Dosage: 1 TABLET, ORAL ; 1 TABLE, 1 TIME, ORAL
     Route: 048
     Dates: start: 20070401, end: 20070401
  3. ALBUTEROL [Concomitant]
  4. ADVAIR DISKUS 100/50 [Concomitant]

REACTIONS (2)
  - CHEST DISCOMFORT [None]
  - DYSPNOEA [None]
